FAERS Safety Report 8624393-4 (Version None)
Quarter: 2012Q3

REPORT INFORMATION
  Report Type: 
  Country: None (occurrence: None)
  Receive Date: 20120827
  Receipt Date: 20120822
  Transmission Date: 20120928
  Serious: Yes (Hospitalization)
  Sender: FDA-Public Use
  Company Number: FR-PFIZER INC-2012205464

PATIENT
  Age: 75 Year
  Sex: Female

DRUGS (9)
  1. MICARDIS [Concomitant]
     Dosage: 80 MG, 1X/DAY
     Route: 048
  2. RISPERDAL [Suspect]
     Indication: ABNORMAL BEHAVIOUR
     Dosage: 2.5 MG, 1X/DAY
     Route: 048
     Dates: start: 20111001
  3. HYDREA [Concomitant]
     Dosage: 500 MG, 1X/DAY
     Route: 048
  4. GLUCOPHAGE [Concomitant]
     Dosage: 500 MG, 2X/DAY
     Route: 048
  5. IMOVANE [Suspect]
     Indication: ABNORMAL BEHAVIOUR
     Dosage: 7.5 MG, 1X/DAY
     Route: 048
     Dates: start: 20111001, end: 20120312
  6. ASPIRIN [Concomitant]
     Dosage: 160 MG, 1X/DAY
     Route: 048
     Dates: start: 20111001
  7. EFFEXOR XR [Suspect]
     Indication: ABNORMAL BEHAVIOUR
     Dosage: 75 MG, 3X/DAY
     Route: 048
     Dates: start: 20111001
  8. XANAX [Suspect]
     Indication: ABNORMAL BEHAVIOUR
     Dosage: 0.5 MG, DAILY
     Route: 048
     Dates: start: 20111001
  9. CRESTOR [Concomitant]
     Dosage: 5 MG, 1X/DAY
     Route: 048

REACTIONS (3)
  - MALAISE [None]
  - FALL [None]
  - FACE INJURY [None]
